FAERS Safety Report 18612277 (Version 1)
Quarter: 2020Q4

REPORT INFORMATION
  Report Type: Spontaneous
  Country: US (occurrence: US)
  Receive Date: 20201214
  Receipt Date: 20201214
  Transmission Date: 20210114
  Serious: Yes (Other)
  Sender: FDA-Public Use
  Company Number: US-B.I. PHARMACEUTICALS,INC./RIDGEFIELD-2020-BI-067016

PATIENT
  Age: 68 Year
  Sex: Female

DRUGS (3)
  1. LOSARTAN. [Suspect]
     Active Substance: LOSARTAN
     Indication: HYPERTENSION
     Dosage: NR
     Dates: start: 20201119
  2. LOSARTAN. [Suspect]
     Active Substance: LOSARTAN
  3. CATAPRES [Suspect]
     Active Substance: CLONIDINE HYDROCHLORIDE
     Indication: HYPERTENSION
     Dosage: NR
     Dates: start: 20201119, end: 20201129

REACTIONS (2)
  - Depressed level of consciousness [Unknown]
  - Hepatic cancer [Unknown]

NARRATIVE: CASE EVENT DATE: 202011
